FAERS Safety Report 6996647-9 (Version None)
Quarter: 2010Q3

REPORT INFORMATION
  Report Type: 
  Country: None (occurrence: None)
  Receive Date: 20100918
  Receipt Date: 20090507
  Transmission Date: 20110219
  Serious: No
  Sender: FDA-Public Use
  Company Number: US-WYE-H09271609

PATIENT
  Sex: Female
  Weight: 70.37 kg

DRUGS (1)
  1. PREMPRO [Suspect]
     Indication: MENOPAUSE
     Dosage: ONE 0.3MG/ 0.5MG TABLET, THEN TRIED CUTTING TABLET IN HALF
     Route: 048
     Dates: start: 20090501

REACTIONS (4)
  - CONDITION AGGRAVATED [None]
  - HYPOTENSION [None]
  - PARAESTHESIA [None]
  - WRONG TECHNIQUE IN DRUG USAGE PROCESS [None]
